FAERS Safety Report 4498842-X (Version None)
Quarter: 2004Q4

REPORT INFORMATION
  Report Type: 
  Country: None (occurrence: None)
  Receive Date: 20040927
  Receipt Date: 20040812
  Transmission Date: 20050328
  Serious: No
  Sender: FDA-Public Use
  Company Number: USA040670325

PATIENT
  Age: 38 Year
  Sex: Male

DRUGS (5)
  1. STRATTERA [Suspect]
     Indication: ATTENTION DEFICIT/HYPERACTIVITY DISORDER
     Dosage: 25 MG
  2. DEXEDRINE (DEXAMFETAMINE SULFATE) [Concomitant]
  3. LEXAPRO [Concomitant]
  4. ZOLOFT [Concomitant]
  5. WELLBUTRIN [Concomitant]

REACTIONS (2)
  - TESTICULAR DISORDER [None]
  - TESTICULAR PAIN [None]
